FAERS Safety Report 24410926 (Version 1)
Quarter: 2024Q4

REPORT INFORMATION
  Report Type: Spontaneous
  Country: US (occurrence: US)
  Receive Date: 20241008
  Receipt Date: 20241008
  Transmission Date: 20250114
  Serious: No
  Sender: GLAND PHARMA
  Company Number: US-GLANDPHARMA-US-2024GLNSPO00806

PATIENT
  Sex: Male

DRUGS (1)
  1. BROMFENAC OPHTHALMIC SOLUTION 0.09% [Suspect]
     Active Substance: BROMFENAC SODIUM
     Indication: Product used for unknown indication

REACTIONS (2)
  - Product use issue [Unknown]
  - Product packaging quantity issue [Unknown]
